FAERS Safety Report 16665506 (Version 1)
Quarter: 2019Q3

REPORT INFORMATION
  Report Type: Spontaneous
  Country: DE (occurrence: DE)
  Receive Date: 20190803
  Receipt Date: 20190803
  Transmission Date: 20191004
  Serious: Yes (Other)
  Sender: FDA-Public Use
  Company Number: PHHY2019DE177014

PATIENT
  Sex: Male

DRUGS (1)
  1. EVEROLIMUS. [Suspect]
     Active Substance: EVEROLIMUS
     Indication: MENINGIOMA
     Route: 062

REACTIONS (4)
  - Meningioma [Unknown]
  - Acquired gene mutation [Unknown]
  - Product use in unapproved indication [Unknown]
  - Recurrent cancer [Unknown]
